FAERS Safety Report 4883844-1 (Version None)
Quarter: 2006Q1

REPORT INFORMATION
  Report Type: 
  Country: None (occurrence: None)
  Receive Date: 20060113
  Receipt Date: 20051227
  Transmission Date: 20060701
  Serious: Yes (Other)
  Sender: FDA-Public Use
  Company Number: US200512004190

PATIENT
  Age: 76 Year
  Sex: Male

DRUGS (13)
  1. HUMULIN 70/30 [Suspect]
     Dosage: SEE IMAGE
     Dates: start: 19850101
  2. HUMULIN 70/30 [Suspect]
     Dosage: SEE IMAGE
     Dates: start: 19850101
  3. HUMULIN 70/30 PEN (HUMULIN 70/30 PEN), PEN DISPOSABLE [Concomitant]
  4. ISOSORBIDE (ISOSORBIDE) [Concomitant]
  5. SENNA (SENNA) [Concomitant]
  6. METOLAZONE [Concomitant]
  7. COREG [Concomitant]
  8. SODA MINT (SODIUM BICARBONATE) TABLET [Concomitant]
  9. BUMETANIDE [Concomitant]
  10. ASA (ASPIRIN (ACETYLSALICYLIC ACID) CAPSULE [Concomitant]
  11. RANITIDINE [Concomitant]
  12. SYNTHROID [Concomitant]
  13. CRESTAR (ROSUVASTATIN) [Concomitant]

REACTIONS (4)
  - CARDIAC DISORDER [None]
  - CONDITION AGGRAVATED [None]
  - MYOCARDIAL INFARCTION [None]
  - RENAL DISORDER [None]
